FAERS Safety Report 14193154 (Version 2)
Quarter: 2018Q1

REPORT INFORMATION
  Report Type: Report from Study
  Country: US (occurrence: US)
  Receive Date: 20171116
  Receipt Date: 20180308
  Transmission Date: 20180508
  Serious: Yes (Other)
  Sender: FDA-Public Use
  Company Number: US-UCBSA-2017045445

PATIENT
  Sex: Male

DRUGS (3)
  1. TEMODAR [Concomitant]
     Active Substance: TEMOZOLOMIDE
     Indication: GLIOMA
     Dosage: UNK
  2. LACOSAMIDE. [Suspect]
     Active Substance: LACOSAMIDE
     Indication: SEIZURE
     Dosage: 200 MG, 2X/DAY (BID)
     Route: 048
  3. DEPAKOTE [Concomitant]
     Active Substance: DIVALPROEX SODIUM
     Indication: PRODUCT USED FOR UNKNOWN INDICATION
     Dosage: 1500 MG, 2X/DAY (BID)
     Route: 048

REACTIONS (2)
  - Seizure [Not Recovered/Not Resolved]
  - Neoplasm recurrence [Unknown]

NARRATIVE: CASE EVENT DATE: 2009
